FAERS Safety Report 8959641 (Version 1)
Quarter: 2012Q4

REPORT INFORMATION
  Report Type: 
  Country: US (occurrence: US)
  Receive Date: 20121212
  Receipt Date: 20121212
  Transmission Date: 20130627
  Serious: No
  Sender: FDA-Public Use
  Company Number: US-009507513-1212USA003188

PATIENT

DRUGS (1)
  1. ASMANEX TWISTHALER [Suspect]
     Dosage: 1 puff in the evening for 1 week only then follow up
     Route: 055
     Dates: start: 20121127

REACTIONS (3)
  - Product quality issue [Unknown]
  - No adverse event [Unknown]
  - Drug dose omission [Unknown]
